FAERS Safety Report 21973749 (Version 2)
Quarter: 2023Q1

REPORT INFORMATION
  Report Type: Spontaneous
  Country: None (occurrence: DE)
  Receive Date: 20230209
  Receipt Date: 20230209
  Transmission Date: 20230418
  Serious: Yes (Hospitalization)
  Sender: FDA-Public Use
  Company Number: DE-Hill Dermaceuticals, Inc.-2137720

PATIENT
  Age: 63 Year
  Sex: Female
  Weight: 76 kg

DRUGS (8)
  1. TOLAK [Suspect]
     Active Substance: FLUOROURACIL
     Indication: Product used for unknown indication
     Route: 065
  2. OXALIPLATIN [Suspect]
     Active Substance: OXALIPLATIN
     Route: 065
  3. LEUCOVORIN [Suspect]
     Active Substance: LEUCOVORIN
     Route: 065
  4. GRANISETRON [Concomitant]
     Active Substance: GRANISETRON
     Route: 065
  5. MIRTAZAPINE [Concomitant]
     Active Substance: MIRTAZAPINE
     Route: 065
  6. FENTANYL CITRATE [Concomitant]
     Active Substance: FENTANYL CITRATE
     Route: 060
  7. AMOXICILLIN AND CLAVULANATE POTASSIUM [Concomitant]
     Active Substance: AMOXICILLIN\CLAVULANATE POTASSIUM
     Route: 065
  8. FENTANYL [Concomitant]
     Active Substance: FENTANYL
     Route: 065

REACTIONS (3)
  - Vomiting [Unknown]
  - Musculoskeletal pain [Unknown]
  - Nausea [Unknown]
